FAERS Safety Report 12489127 (Version 4)
Quarter: 2016Q4

REPORT INFORMATION
  Report Type: Spontaneous
  Country: JP (occurrence: JP)
  Receive Date: 20160622
  Receipt Date: 20161102
  Transmission Date: 20170207
  Serious: Yes (Disabling)
  Sender: FDA-Public Use
  Company Number: JP-EISAI MEDICAL RESEARCH-EC-2016-017888

PATIENT
  Age: 53 Year
  Sex: Female

DRUGS (6)
  1. GRANDAXIN [Concomitant]
     Active Substance: TOFISOPAM
     Indication: AUTONOMIC NERVOUS SYSTEM IMBALANCE
     Route: 048
     Dates: start: 20160511, end: 20160607
  2. SELBEX [Concomitant]
     Active Substance: TEPRENONE
     Indication: CHRONIC GASTRITIS
     Route: 048
     Dates: start: 20160511, end: 20160607
  3. GASLON [Concomitant]
     Active Substance: IRSOGLADINE MALEATE
     Indication: CHRONIC GASTRITIS
     Route: 048
     Dates: start: 20160511, end: 20160607
  4. PARIET [Suspect]
     Active Substance: RABEPRAZOLE SODIUM
     Indication: GASTROOESOPHAGEAL REFLUX DISEASE
     Route: 048
     Dates: start: 20160511, end: 20160606
  5. NORVASC [Concomitant]
     Active Substance: AMLODIPINE BESYLATE
     Indication: HYPERTENSION
     Route: 048
     Dates: start: 20100916
  6. CRESTOR [Suspect]
     Active Substance: ROSUVASTATIN CALCIUM
     Indication: HYPERCHOLESTEROLAEMIA
     Route: 048
     Dates: start: 20160519, end: 20160606

REACTIONS (2)
  - Anaphylactic reaction [Recovered/Resolved]
  - Erythema [Unknown]

NARRATIVE: CASE EVENT DATE: 2016
